FAERS Safety Report 10142000 (Version 1)
Quarter: 2014Q2

REPORT INFORMATION
  Report Type: Spontaneous
  Country: BR (occurrence: BR)
  Receive Date: 20140429
  Receipt Date: 20140429
  Transmission Date: 20141212
  Serious: Yes (Other)
  Sender: FDA-Public Use
  Company Number: BR-009507513-1404BRA014225

PATIENT
  Age: 46 Year
  Sex: Female

DRUGS (7)
  1. AMITRIPTYLINE HYDROCHLORIDE [Suspect]
     Indication: FIBROMYALGIA
     Dosage: 25 MG, QD
     Route: 048
     Dates: end: 2013
  2. AMITRIPTYLINE HYDROCHLORIDE [Interacting]
     Dosage: 50 MG, QD
     Route: 048
     Dates: start: 2013
  3. SIMVASTATIN [Suspect]
     Dosage: UNK, QD
     Route: 048
     Dates: end: 2013
  4. SIMVASTATIN [Suspect]
     Dosage: UNK, QD
     Dates: start: 2013
  5. TRAMADOL HYDROCHLORIDE (RETARD) [Concomitant]
     Indication: FIBROMYALGIA
     Dosage: 150 MG, BID
     Dates: end: 2013
  6. ACETAMINOPHEN [Concomitant]
     Indication: FIBROMYALGIA
     Dosage: 650 MG, TID
  7. ESOMEPRAZOLE [Concomitant]
     Dosage: UNK, QD

REACTIONS (2)
  - Serotonin syndrome [Recovered/Resolved]
  - Drug interaction [Recovered/Resolved]
